FAERS Safety Report 6011483-8 (Version None)
Quarter: 2008Q4

REPORT INFORMATION
  Report Type: 
  Country: None (occurrence: None)
  Receive Date: 20081218
  Receipt Date: 20081216
  Transmission Date: 20090506
  Serious: Yes (Death)
  Sender: FDA-Public Use
  Company Number: NL-BAYER-200832876GPV

PATIENT
  Age: 75 Year
  Sex: Male

DRUGS (5)
  1. ALEVE (CAPLET) [Suspect]
     Indication: BACK PAIN
     Route: 048
  2. ARCOXIA [Suspect]
     Indication: BACK PAIN
     Dosage: AS USED: TO 90 MG  UNIT DOSE: 90 MG
     Route: 048
     Dates: start: 20080806
  3. SYMBICORT [Concomitant]
     Indication: DRUG USE FOR UNKNOWN INDICATION
     Dosage: AS USED: 100/6 ?G
     Route: 055
  4. BRICANYL [Concomitant]
     Indication: DRUG USE FOR UNKNOWN INDICATION
     Route: 055
  5. CREMOR [Concomitant]
     Indication: DRUG USE FOR UNKNOWN INDICATION
     Route: 003

REACTIONS (1)
  - GASTRIC HAEMORRHAGE [None]
